FAERS Safety Report 5299680-0 (Version None)
Quarter: 2007Q2

REPORT INFORMATION
  Report Type: 
  Country: None (occurrence: None)
  Receive Date: 20070410
  Receipt Date: 20070329
  Transmission Date: 20071010
  Serious: Yes (Other)
  Sender: FDA-Public Use
  Company Number: GXKR2007DE02920

PATIENT
  Age: 83 Year
  Sex: Female

DRUGS (2)
  1. TRAMADOL HCL [Suspect]
     Indication: ABDOMINAL PAIN
     Dosage: 25 MG, QD
  2. DULOXETINE(DULOXETINE) [Suspect]
     Indication: MOOD ALTERED
     Dosage: 60 MG/D

REACTIONS (3)
  - DRUG INTERACTION [None]
  - DYSARTHRIA [None]
  - SPEECH DISORDER [None]
